FAERS Safety Report 19197893 (Version 2)
Quarter: 2021Q4

REPORT INFORMATION
  Report Type: Report from Study
  Country: US (occurrence: US)
  Receive Date: 20210430
  Receipt Date: 20211022
  Transmission Date: 20220303
  Serious: Yes (Death, Other)
  Sender: FDA-Public Use
  Company Number: US-ACADIA PHARMACEUTICALS INC.-ACA-2021-PIM-000557

PATIENT
  Age: 71 Year
  Sex: Male

DRUGS (7)
  1. NUPLAZID [Suspect]
     Active Substance: PIMAVANSERIN TARTRATE
     Indication: Parkinson^s disease psychosis
     Dosage: 34 MILLIGRAM, QD
     Route: 048
     Dates: start: 20210303
  2. NUPLAZID [Suspect]
     Active Substance: PIMAVANSERIN TARTRATE
     Indication: Hallucination
  3. NUPLAZID [Suspect]
     Active Substance: PIMAVANSERIN TARTRATE
     Indication: Delusion
  4. FIRMAGON [Concomitant]
     Active Substance: DEGARELIX ACETATE
  5. RYTARY [Concomitant]
     Active Substance: CARBIDOPA\LEVODOPA
  6. SIMVASTATIN [Concomitant]
     Active Substance: SIMVASTATIN
  7. DUTASTERIDE [Concomitant]
     Active Substance: DUTASTERIDE

REACTIONS (2)
  - Death [Recovered/Resolved]
  - Treatment noncompliance [Not Recovered/Not Resolved]

NARRATIVE: CASE EVENT DATE: 20210301
